FAERS Safety Report 17775728 (Version 3)
Quarter: 2022Q1

REPORT INFORMATION
  Report Type: Report from Study
  Country: US (occurrence: US)
  Receive Date: 20200513
  Receipt Date: 20220316
  Transmission Date: 20220423
  Serious: No
  Sender: FDA-Public Use
  Company Number: US-ACADIA PHARMACEUTICALS INC.-ACA-2020-PIM-001221

PATIENT
  Age: 47 Year
  Sex: Male

DRUGS (3)
  1. NUPLAZID [Suspect]
     Active Substance: PIMAVANSERIN TARTRATE
     Indication: Parkinson^s disease
     Dosage: 10 MILLIGRAM, QD
     Route: 048
  2. PROZAC [Suspect]
     Active Substance: FLUOXETINE HYDROCHLORIDE
     Dosage: UNK
  3. ALCOHOL [Suspect]
     Active Substance: ALCOHOL
     Indication: Infection
     Dosage: UNK

REACTIONS (6)
  - Rash pustular [Unknown]
  - Product dose omission issue [Unknown]
  - Infection [Unknown]
  - Urine output increased [Unknown]
  - Viral infection [Unknown]
  - Underdose [Unknown]

NARRATIVE: CASE EVENT DATE: 20200520
